FAERS Safety Report 4865449-1 (Version None)
Quarter: 2005Q4

REPORT INFORMATION
  Report Type: 
  Country: None (occurrence: None)
  Receive Date: 20051219
  Receipt Date: 20051208
  Transmission Date: 20060501
  Serious: Yes (Life-Threatening, Hospitalization)
  Sender: FDA-Public Use
  Company Number: MK200512-0157-1

PATIENT
  Age: 72 Year
  Sex: Female

DRUGS (6)
  1. TECHNESCAN MAA [Suspect]
     Indication: LUNG DISORDER
     Dosage: SINGLE USE, IV
     Route: 042
     Dates: start: 20051026, end: 20051026
  2. TECHNESCAN MAA [Suspect]
     Indication: SCINTIGRAPHY
     Dosage: SINGLE USE, IV
     Route: 042
     Dates: start: 20051026, end: 20051026
  3. PRAVASTATIN [Concomitant]
  4. DEROXAT (TERBINAFIN) [Concomitant]
  5. TC99M PHYTATE            (GENERATOR) [Concomitant]
  6. LAMISIL                 (TERBINAFIN) [Concomitant]

REACTIONS (3)
  - BLOOD PRESSURE DECREASED [None]
  - DISORIENTATION [None]
  - HYPOXIA [None]
